FAERS Safety Report 15609423 (Version 2)
Quarter: 2021Q4

REPORT INFORMATION
  Report Type: Report from Study
  Country: FR (occurrence: FR)
  Receive Date: 20181112
  Receipt Date: 20211020
  Transmission Date: 20220303
  Serious: Yes (Life-Threatening, Hospitalization, Other)
  Sender: FDA-Public Use
  Company Number: FR-SHIRE-FR201716359

PATIENT
  Age: 2 Year
  Sex: Male
  Weight: 14 kg

DRUGS (5)
  1. METHOTREXATE [Suspect]
     Active Substance: METHOTREXATE
     Indication: Acute lymphocytic leukaemia
     Dosage: 10 MILLIGRAM, (10 MG)
     Route: 037
     Dates: start: 20170622, end: 20170622
  2. DEXAMETHASONE [Suspect]
     Active Substance: DEXAMETHASONE
     Indication: Acute lymphocytic leukaemia
     Dosage: 6 MG, QD,(6 MG, 1X/DAY:QD)
     Route: 048
     Dates: start: 20170621, end: 20170625
  3. VINCRISTINE [Suspect]
     Active Substance: VINCRISTINE
     Indication: Acute lymphocytic leukaemia
     Dosage: 0.9 MILLIGRAM, (0.9 MG)
     Route: 042
     Dates: start: 20170628, end: 20170628
  4. PEGASPARGASE [Suspect]
     Active Substance: PEGASPARGASE
     Indication: Acute lymphocytic leukaemia
     Dosage: 750 INTERNATIONAL UNIT, 750 IU
     Route: 042
     Dates: start: 20170628, end: 20170628
  5. MERCAPTOPURINE [Suspect]
     Active Substance: MERCAPTOPURINE
     Indication: Acute lymphocytic leukaemia
     Dosage: 50 MILLIGRAM, (50 MG)
     Route: 042
     Dates: start: 20170628, end: 20170628

REACTIONS (1)
  - Anaphylactic shock [Recovered/Resolved]

NARRATIVE: CASE EVENT DATE: 20170628
